FAERS Safety Report 10835173 (Version 1)
Quarter: 2015Q1

REPORT INFORMATION
  Report Type: Spontaneous
  Country: US (occurrence: US)
  Receive Date: 20150219
  Receipt Date: 20150219
  Transmission Date: 20150721
  Serious: Yes (Hospitalization)
  Sender: FDA-Public Use
  Company Number: PHHY2015US016864

PATIENT
  Age: 86 Year
  Sex: Female

DRUGS (1)
  1. ALENDRONATE [Suspect]
     Active Substance: ALENDRONATE SODIUM
     Indication: PRODUCT USED FOR UNKNOWN INDICATION
     Route: 048

REACTIONS (8)
  - Delirium [Unknown]
  - Communication disorder [Unknown]
  - Oesophageal motility disorder [Unknown]
  - Hypertensive emergency [Recovered/Resolved]
  - Dehydration [Unknown]
  - Wrong technique in drug usage process [Unknown]
  - Disorientation [Unknown]
  - Slow response to stimuli [Unknown]
